FAERS Safety Report 23767158 (Version 3)
Quarter: 2024Q2

REPORT INFORMATION
  Report Type: Spontaneous
  Country: JP (occurrence: JP)
  Receive Date: 20240422
  Receipt Date: 20240603
  Transmission Date: 20240716
  Serious: Yes (Other)
  Sender: FDA-Public Use
  Company Number: JP-LEO Pharma-369557

PATIENT
  Age: 89 Year
  Sex: Male

DRUGS (1)
  1. TACLONEX [Suspect]
     Active Substance: BETAMETHASONE DIPROPIONATE\CALCIPOTRIENE\CALCIPOTRIENE HYDRATE
     Indication: Psoriasis
     Dosage: THE AREA TO BE APPLIED IS THE HIPS.
     Dates: start: 20190509

REACTIONS (2)
  - Skin injury [Unknown]
  - Prostate cancer [Unknown]
